FAERS Safety Report 9047527 (Version 1)
Quarter: 2013Q1

REPORT INFORMATION
  Report Type: Spontaneous
  Country: US (occurrence: US)
  Receive Date: 20130204
  Receipt Date: 20130204
  Transmission Date: 20140127
  Serious: No
  Sender: FDA-Public Use
  Company Number: US-AMGEN-USASP2013002443

PATIENT
  Age: 42 Year
  Sex: Male
  Weight: 76.19 kg

DRUGS (3)
  1. ENBREL [Suspect]
     Indication: PSORIASIS
     Dosage: 25 MG, WEEKLY
     Route: 058
     Dates: start: 2004, end: 201202
  2. COMBIVIR [Concomitant]
     Indication: HIV INFECTION
     Dosage: UNK UNK, BID
     Route: 048
     Dates: start: 2002
  3. SELZENTRY [Concomitant]
     Indication: HIV INFECTION
     Dosage: 300 MG, BID
     Route: 048
     Dates: start: 2003

REACTIONS (1)
  - Skin plaque [Not Recovered/Not Resolved]
